FAERS Safety Report 14179049 (Version 1)
Quarter: 2017Q4

REPORT INFORMATION
  Report Type: Spontaneous
  Country: US (occurrence: US)
  Receive Date: 20171111
  Receipt Date: 20171111
  Transmission Date: 20180321
  Serious: No
  Sender: FDA-Public Use
  Company Number: US-SHIRE-US201723454

PATIENT

DRUGS (1)
  1. XIIDRA [Suspect]
     Active Substance: LIFITEGRAST
     Indication: PRODUCT USED FOR UNKNOWN INDICATION
     Dosage: 50MG/ML
     Route: 047

REACTIONS (5)
  - Rash erythematous [Unknown]
  - Drug ineffective [Unknown]
  - Instillation site pain [Unknown]
  - Instillation site irritation [Unknown]
  - Condition aggravated [Unknown]
